FAERS Safety Report 16866251 (Version 1)
Quarter: 2019Q3

REPORT INFORMATION
  Report Type: Spontaneous
  Country: JP (occurrence: JP)
  Receive Date: 20190930
  Receipt Date: 20190930
  Transmission Date: 20191005
  Serious: Yes (Hospitalization)
  Sender: FDA-Public Use
  Company Number: JP-ACCORD-156023

PATIENT
  Age: 48 Year
  Sex: Male

DRUGS (3)
  1. FUROSEMIDE. [Suspect]
     Active Substance: FUROSEMIDE
     Indication: PRODUCT USED FOR UNKNOWN INDICATION
     Route: 042
  2. TOLVAPTAN [Concomitant]
     Active Substance: TOLVAPTAN
  3. THIAMINE. [Concomitant]
     Active Substance: THIAMINE

REACTIONS (2)
  - Oedema [Recovering/Resolving]
  - Confusional state [Recovering/Resolving]
